FAERS Safety Report 20882089 (Version 1)
Quarter: 2022Q2

REPORT INFORMATION
  Report Type: Other
  Country: US (occurrence: None)
  Receive Date: 20220527
  Receipt Date: 20220527
  Transmission Date: 20220721
  Serious: Yes (Death)
  Sender: FDA-Public Use
  Company Number: US-ROCHE-3078846

PATIENT
  Sex: Female

DRUGS (2)
  1. OCREVUS [Suspect]
     Active Substance: OCRELIZUMAB
     Indication: Multiple sclerosis
     Dosage: (PRESCRIBED AS INFUSE 300 MG ONCE EVERY 2 WEEKS THEN 600 MG EVERY 6 MONTHS)?DATE OF TREATMENT: 07/MA
     Route: 065
     Dates: start: 20210507
  2. OCREVUS [Suspect]
     Active Substance: OCRELIZUMAB
     Indication: Relapsing-remitting multiple sclerosis

REACTIONS (3)
  - Hepatic cirrhosis [Fatal]
  - Hepatitis alcoholic [Fatal]
  - Acute hepatic failure [Fatal]
